FAERS Safety Report 24277427 (Version 2)
Quarter: 2024Q3

REPORT INFORMATION
  Report Type: Spontaneous
  Country: KR (occurrence: KR)
  Receive Date: 20240903
  Receipt Date: 20240910
  Transmission Date: 20241017
  Serious: Yes (Other)
  Sender: ALEXION PHARMACEUTICALS
  Company Number: KR-ALXN-202408KOR000742KR

PATIENT
  Age: 34 Year
  Sex: Female

DRUGS (1)
  1. SOLIRIS [Suspect]
     Active Substance: ECULIZUMAB
     Indication: Neuromyelitis optica spectrum disorder
     Dosage: 1200 MILLIGRAM, Q2W
     Route: 042
     Dates: start: 20240716

REACTIONS (2)
  - Systemic lupus erythematosus [Unknown]
  - Glomerular filtration rate decreased [Unknown]
